FAERS Safety Report 25821539 (Version 1)
Quarter: 2025Q3

REPORT INFORMATION
  Report Type: Report from Study
  Country: EU (occurrence: EU)
  Receive Date: 20250919
  Receipt Date: 20250919
  Transmission Date: 20251020
  Serious: Yes (Life-Threatening, Disabling)
  Sender: ROCHE
  Company Number: EU-ROCHE-10000388868

PATIENT
  Age: 54 Year
  Sex: Male
  Weight: 89 kg

DRUGS (9)
  1. OCREVUS [Suspect]
     Active Substance: OCRELIZUMAB
     Indication: Primary progressive multiple sclerosis
     Route: 042
     Dates: start: 20191219, end: 20231108
  2. APIXABAN [Concomitant]
     Active Substance: APIXABAN
  3. BISOPROLOL [Concomitant]
     Active Substance: BISOPROLOL
  4. CARBAMAZEPINE [Concomitant]
     Active Substance: CARBAMAZEPINE
  5. CHOLECALCIFEROL [Concomitant]
     Active Substance: CHOLECALCIFEROL
     Dosage: DOSE: 1000 IU/ML
  6. CITALOPRAM [Concomitant]
     Active Substance: CITALOPRAM
  7. ATORVASTATIN [Concomitant]
     Active Substance: ATORVASTATIN
  8. PANTOPRAZOLE [Concomitant]
     Active Substance: PANTOPRAZOLE
  9. TAMSULOSIN [Concomitant]
     Active Substance: TAMSULOSIN

REACTIONS (3)
  - Sepsis [Recovered/Resolved]
  - Pulmonary embolism [Recovered/Resolved]
  - Multiple organ dysfunction syndrome [Recovered/Resolved]

NARRATIVE: CASE EVENT DATE: 20240301
